FAERS Safety Report 7153716-0 (Version None)
Quarter: 2010Q4

REPORT INFORMATION
  Report Type: 
  Country: None (occurrence: None)
  Receive Date: 20101213
  Receipt Date: 20101129
  Transmission Date: 20110411
  Serious: Yes (Hospitalization)
  Sender: FDA-Public Use
  Company Number: JP-MERCK-1011USA03568

PATIENT
  Age: 69 Year
  Sex: Female

DRUGS (4)
  1. PEPCID RPD [Suspect]
     Route: 048
     Dates: start: 20101117, end: 20101117
  2. CELECOXIB [Suspect]
     Indication: OSTEOARTHRITIS
     Route: 048
     Dates: start: 20101117, end: 20101117
  3. NORVASC [Concomitant]
     Route: 065
  4. KETOPROFEN [Concomitant]
     Route: 065
     Dates: start: 20101117, end: 20101117

REACTIONS (1)
  - DRUG ERUPTION [None]
